FAERS Safety Report 10777972 (Version 3)
Quarter: 2015Q1

REPORT INFORMATION
  Report Type: Spontaneous
  Country: IT (occurrence: IT)
  Receive Date: 20150209
  Receipt Date: 20150227
  Transmission Date: 20150721
  Serious: Yes (Hospitalization)
  Sender: FDA-Public Use
  Company Number: IT-PFIZER INC-2015047747

PATIENT
  Age: 26 Year
  Sex: Female

DRUGS (3)
  1. AMOXICILLIN TRIHYDRATE [Suspect]
     Active Substance: AMOXICILLIN
     Dosage: 2 G, SINGLE
     Route: 048
     Dates: start: 20150113, end: 20150113
  2. FLUCONAZOLE. [Suspect]
     Active Substance: FLUCONAZOLE
     Dosage: 1000 MG, SINGLE
     Route: 048
     Dates: start: 20150113, end: 20150113
  3. LEXOTAN [Suspect]
     Active Substance: BROMAZEPAM
     Dosage: 20 ML, SINGLE
     Route: 048
     Dates: start: 20150113, end: 20150113

REACTIONS (3)
  - Drug abuse [Recovering/Resolving]
  - Hypoaesthesia [Recovering/Resolving]
  - Agitation [Recovering/Resolving]

NARRATIVE: CASE EVENT DATE: 20150113
